FAERS Safety Report 12056469 (Version 1)
Quarter: 2016Q1

REPORT INFORMATION
  Report Type: Report from Study
  Country: US (occurrence: US)
  Receive Date: 20160209
  Receipt Date: 20160209
  Transmission Date: 20160526
  Serious: Yes (Hospitalization)
  Sender: FDA-Public Use
  Company Number: US-ABBVIE-15P-163-1478433-00

PATIENT
  Sex: Female

DRUGS (1)
  1. HUMIRA [Suspect]
     Active Substance: ADALIMUMAB
     Indication: JUVENILE IDIOPATHIC ARTHRITIS
     Route: 065
     Dates: start: 201503

REACTIONS (8)
  - Injection site haemorrhage [Recovered/Resolved]
  - Polyp [Unknown]
  - Sinusitis [Recovered/Resolved]
  - Hypersensitivity [Unknown]
  - Abdominal pain upper [Recovered/Resolved]
  - Injection site swelling [Recovered/Resolved]
  - Palpitations [Recovered/Resolved]
  - Drug dose omission [Recovered/Resolved]
